FAERS Safety Report 8861014 (Version 1)
Quarter: 2012Q4

REPORT INFORMATION
  Report Type: Spontaneous
  Country: DK (occurrence: None)
  Receive Date: 20121022
  Receipt Date: 20121022
  Transmission Date: 20130627
  Serious: Yes (Other)
  Sender: FDA-Public Use
  Company Number: FK201203059

PATIENT
  Age: 42 Year
  Sex: Female

DRUGS (5)
  1. MORPHINE [Suspect]
     Indication: ANAESTHESIA
     Route: 042
  2. MORPHINE [Suspect]
     Indication: ABDOMINAL PAIN UPPER
     Route: 042
  3. MORPHINE [Suspect]
     Indication: ANAESTHESIA
     Route: 039
  4. MORPHINE [Suspect]
     Indication: ABDOMINAL PAIN UPPER
     Route: 039
  5. EPINEPHRINE [Suspect]
     Indication: EPIDURAL ANAESTHESIA
     Dosage: 2 mcg/ml, 8-10 ml/h, intrathecal

REACTIONS (4)
  - Hyperaesthesia [None]
  - Flushing [None]
  - Pruritus [None]
  - Hyperaesthesia [None]
